FAERS Safety Report 11909404 (Version 2)
Quarter: 2016Q2

REPORT INFORMATION
  Report Type: Spontaneous
  Country: US (occurrence: US)
  Receive Date: 20160112
  Receipt Date: 20160419
  Transmission Date: 20160815
  Serious: No
  Sender: FDA-Public Use
  Company Number: US-TEVA-623375USA

PATIENT
  Age: 35 Year
  Sex: Female

DRUGS (29)
  1. ZECUITY [Suspect]
     Active Substance: SUMATRIPTAN SUCCINATE
     Indication: MIGRAINE
     Dosage: 6.5 MG / 4 HOURS
     Route: 062
     Dates: start: 20151216, end: 20151216
  2. TOFRANIL-PM [Concomitant]
     Active Substance: IMIPRAMINE PAMOATE
  3. SINGULAIR [Concomitant]
     Active Substance: MONTELUKAST SODIUM
  4. ZOMIG [Concomitant]
     Active Substance: ZOLMITRIPTAN
     Indication: MIGRAINE
     Route: 048
  5. PERIACTIN [Concomitant]
     Active Substance: CYPROHEPTADINE HYDROCHLORIDE
     Dosage: 12 MILLIGRAM DAILY;
     Route: 048
  6. HYDRODIURIL [Concomitant]
     Active Substance: HYDROCHLOROTHIAZIDE
  7. SEROQUEL [Concomitant]
     Active Substance: QUETIAPINE FUMARATE
     Route: 048
  8. MELATONIN [Concomitant]
     Active Substance: MELATONIN
     Dosage: 30 MILLIGRAM DAILY; 30MG AT HS
  9. BACTROBAN [Concomitant]
     Active Substance: MUPIROCIN\MUPIROCIN CALCIUM
  10. SEROQUEL [Concomitant]
     Active Substance: QUETIAPINE FUMARATE
     Dosage: 200 MILLIGRAM DAILY;
     Route: 048
  11. NEURONTIN [Concomitant]
     Active Substance: GABAPENTIN
  12. MEFENAMIC ACID. [Concomitant]
     Active Substance: MEFENAMIC ACID
  13. NORFLEX [Concomitant]
     Active Substance: ORPHENADRINE CITRATE
     Indication: MUSCLE SPASMS
     Dosage: 50 MILLIGRAM DAILY;
     Route: 048
  14. SEROQUEL [Concomitant]
     Active Substance: QUETIAPINE FUMARATE
     Dosage: FILM 8-2 MG
  15. FENOFIBRATE. [Concomitant]
     Active Substance: FENOFIBRATE
     Route: 048
  16. TIZANIDINE. [Concomitant]
     Active Substance: TIZANIDINE
  17. ACCUNEB [Concomitant]
     Active Substance: ALBUTEROL SULFATE
     Dosage: 1.25/3ML NEUB
  18. COREG [Concomitant]
     Active Substance: CARVEDILOL
  19. NEURONTIN [Concomitant]
     Active Substance: GABAPENTIN
     Dosage: 2400 MILLIGRAM DAILY;
     Route: 048
  20. ZEGERID [Concomitant]
     Active Substance: OMEPRAZOLE\SODIUM BICARBONATE
     Dosage: 1 CAPSULE BY MOUTH BEFORE BREAKFAST/40-1.1 MG-GRAM
     Route: 048
  21. EFFEXOR XR [Concomitant]
     Active Substance: VENLAFAXINE HYDROCHLORIDE
     Dosage: 150 MG CP24
  22. PHENERGAN [Concomitant]
     Active Substance: PROMETHAZINE HYDROCHLORIDE
     Indication: NAUSEA
     Dosage: 150 MILLIGRAM DAILY;
     Route: 048
  23. ZANAFLEX [Concomitant]
     Active Substance: TIZANIDINE HYDROCHLORIDE
     Dosage: 16 MILLIGRAM DAILY; PATIENT TAKING 4 TIMES A DAY
     Route: 048
  24. VENLAFAXINE [Concomitant]
     Active Substance: VENLAFAXINE HYDROCHLORIDE
     Dosage: 150 MILLIGRAM DAILY; TR24
     Route: 048
  25. ELAVIL [Concomitant]
     Active Substance: AMITRIPTYLINE HYDROCHLORIDE
  26. LASIX [Concomitant]
     Active Substance: FUROSEMIDE
     Dosage: 20 GBQ DAILY;
     Route: 048
  27. TOFRANIL [Concomitant]
     Active Substance: IMIPRAMINE HYDROCHLORIDE
  28. LAMICTAL [Concomitant]
     Active Substance: LAMOTRIGINE
     Dosage: 400 MILLIGRAM DAILY;
     Route: 048
  29. MAG-OX [Concomitant]
     Active Substance: MAGNESIUM OXIDE
     Dosage: 400 MILLIGRAM DAILY;
     Route: 048

REACTIONS (8)
  - Headache [Not Recovered/Not Resolved]
  - Application site rash [Recovered/Resolved]
  - Insomnia [Not Recovered/Not Resolved]
  - Application site pain [Recovered/Resolved with Sequelae]
  - Device leakage [Unknown]
  - Application site vesicles [Unknown]
  - Application site urticaria [Unknown]
  - Application site erythema [Recovered/Resolved]

NARRATIVE: CASE EVENT DATE: 20151216
